FAERS Safety Report 10231728 (Version 1)
Quarter: 2014Q2

REPORT INFORMATION
  Report Type: Spontaneous
  Country: JP (occurrence: JP)
  Receive Date: 20140612
  Receipt Date: 20140612
  Transmission Date: 20141212
  Serious: Yes (Other)
  Sender: FDA-Public Use
  Company Number: JP-ROCHE-1417043

PATIENT
  Age: 64 Year
  Sex: Female

DRUGS (2)
  1. RANIBIZUMAB [Suspect]
     Indication: RETINAL VEIN OCCLUSION
     Route: 050
  2. RANIBIZUMAB [Suspect]
     Dosage: RE-ADMINISTERED.
     Route: 050

REACTIONS (1)
  - Disease recurrence [Unknown]
